FAERS Safety Report 18014279 (Version 1)
Quarter: 2020Q3

REPORT INFORMATION
  Report Type: Spontaneous
  Country: US (occurrence: US)
  Receive Date: 20200713
  Receipt Date: 20200713
  Transmission Date: 20201103
  Serious: Yes (Death)
  Sender: FDA-Public Use
  Company Number: None

PATIENT
  Age: 78 Year
  Sex: Male
  Weight: 52.6 kg

DRUGS (2)
  1. REMDESIVIR. [Suspect]
     Active Substance: REMDESIVIR
     Indication: CORONAVIRUS INFECTION
     Route: 040
     Dates: start: 20200517, end: 20200526
  2. COVID ANTIBODY PLASMA [Concomitant]
     Dates: start: 20200519, end: 20200519

REACTIONS (1)
  - Death [None]

NARRATIVE: CASE EVENT DATE: 20200604
